FAERS Safety Report 16616653 (Version 1)
Quarter: 2019Q3

REPORT INFORMATION
  Report Type: Spontaneous
  Country: US (occurrence: US)
  Receive Date: 20190723
  Receipt Date: 20190723
  Transmission Date: 20191004
  Serious: No
  Sender: FDA-Public Use
  Company Number: None

PATIENT
  Age: 45 Year
  Sex: Female
  Weight: 75 kg

DRUGS (1)
  1. SIROLIMUS. [Suspect]
     Active Substance: SIROLIMUS
     Indication: RENAL TRANSPLANT
     Dates: start: 20190625, end: 20190720

REACTIONS (3)
  - Product substitution issue [None]
  - Drug level increased [None]
  - Swelling [None]

NARRATIVE: CASE EVENT DATE: 20190721
